FAERS Safety Report 16218752 (Version 2)
Quarter: 2019Q2

REPORT INFORMATION
  Report Type: Spontaneous
  Country: US (occurrence: US)
  Receive Date: 20190419
  Receipt Date: 20190506
  Transmission Date: 20190711
  Serious: No
  Sender: FDA-Public Use
  Company Number: US-GLAXOSMITHKLINE-US2019067969

PATIENT
  Age: 74 Year
  Sex: Male

DRUGS (2)
  1. TRELEGY ELLIPTA [Suspect]
     Active Substance: FLUTICASONE FUROATE\UMECLIDINIUM BROMIDE\VILANTEROL TRIFENATATE
     Indication: PRODUCT USED FOR UNKNOWN INDICATION
     Dosage: UNK
     Dates: start: 20190409
  2. TRELEGY ELLIPTA [Suspect]
     Active Substance: FLUTICASONE FUROATE\UMECLIDINIUM BROMIDE\VILANTEROL TRIFENATATE
     Dosage: 1 PUFF(S), QD
     Dates: start: 201904

REACTIONS (10)
  - Expulsion of medication [Unknown]
  - Borderline glaucoma [Unknown]
  - Cough [Unknown]
  - Underdose [Unknown]
  - Headache [Unknown]
  - Sensation of foreign body [Unknown]
  - Optic nerve disorder [Not Recovered/Not Resolved]
  - Respiratory tract irritation [Unknown]
  - Abnormal sensation in eye [Unknown]
  - Eye pain [Not Recovered/Not Resolved]

NARRATIVE: CASE EVENT DATE: 201904
